FAERS Safety Report 17508084 (Version 2)
Quarter: 2020Q3

REPORT INFORMATION
  Report Type: Report from Study
  Country: CA (occurrence: CA)
  Receive Date: 20200306
  Receipt Date: 20200404
  Transmission Date: 20201104
  Serious: Yes (Hospitalization)
  Sender: FDA-Public Use
  Company Number: PHHY2018CA013102

PATIENT
  Age: 52 Year
  Sex: Male

DRUGS (4)
  1. CLONAZEPAM. [Suspect]
     Active Substance: CLONAZEPAM
     Indication: PRODUCT USED FOR UNKNOWN INDICATION
     Dosage: 0.5 MG, AS NEEDED
     Route: 065
  2. XOLAIR [Suspect]
     Active Substance: OMALIZUMAB
     Dosage: 300 MG, EVERY 4 WEEKS
     Route: 058
  3. XOLAIR [Suspect]
     Active Substance: OMALIZUMAB
     Dosage: 300 MG EVERY 4 WEEKS
     Route: 058
     Dates: start: 20180510
  4. XOLAIR [Suspect]
     Active Substance: OMALIZUMAB
     Indication: ASTHMA
     Dosage: 300 MG EVERY 4 WEEKS
     Route: 058
     Dates: start: 20130605

REACTIONS (9)
  - Herpes zoster [Recovering/Resolving]
  - Nasopharyngitis [Recovering/Resolving]
  - Influenza [Not Recovered/Not Resolved]
  - Cough [Unknown]
  - Dizziness [Unknown]
  - Drug hypersensitivity [Unknown]
  - Asthma [Not Recovered/Not Resolved]
  - Hyperhidrosis [Unknown]
  - Illness [Recovering/Resolving]

NARRATIVE: CASE EVENT DATE: 20180525
